FAERS Safety Report 9773149 (Version 1)
Quarter: 2013Q4

REPORT INFORMATION
  Report Type: Spontaneous
  Country: US (occurrence: None)
  Receive Date: 20131217
  Receipt Date: 20131217
  Transmission Date: 20140711
  Serious: Yes (Hospitalization)
  Sender: FDA-Public Use
  Company Number: SYM-2013-13784

PATIENT
  Age: 49 Year
  Sex: Female
  Weight: 74.84 kg

DRUGS (8)
  1. ATIVAN [Suspect]
     Indication: DETOXIFICATION
     Route: 042
     Dates: start: 20131018
  2. LIBRIUM [Suspect]
     Indication: DETOXIFICATION
     Route: 042
     Dates: start: 20131018
  3. VALIUM (DIAZEPAM) [Suspect]
     Indication: DETOXIFICATION
     Route: 048
     Dates: start: 20131018
  4. SEROQUEL [Suspect]
     Indication: DETOXIFICATION
     Route: 042
     Dates: start: 20131018, end: 201310
  5. ATIVAN (LORAZEPAM) [Concomitant]
  6. ENALAPRIL [Concomitant]
  7. AMBIEN (ZOLPIDEM TARTRATE) [Concomitant]
  8. UNSPECIFIED ALLERGY MEDICATION (OTHER THERAPEUTIC PRODUCTS) (NULL) [Concomitant]

REACTIONS (5)
  - Ear pain [None]
  - Overdose [None]
  - Off label use [None]
  - Hallucination, visual [None]
  - Asthenia [None]
